FAERS Safety Report 12466817 (Version 1)
Quarter: 2016Q2

REPORT INFORMATION
  Report Type: Spontaneous
  Country: FR (occurrence: FR)
  Receive Date: 20160615
  Receipt Date: 20160615
  Transmission Date: 20160815
  Serious: Yes (Life-Threatening, Hospitalization)
  Sender: FDA-Public Use
  Company Number: FR-009507513-1606FRA005175

PATIENT
  Age: 44 Year
  Sex: Male

DRUGS (25)
  1. CEFTRIAXONE SODIUM. [Concomitant]
     Active Substance: CEFTRIAXONE SODIUM
     Dosage: 2 G/D
     Dates: start: 20160318, end: 20160321
  2. ACETAMINOPHEN. [Concomitant]
     Active Substance: ACETAMINOPHEN
  3. CARBOCYSTEINE [Concomitant]
     Active Substance: CARBOCYSTEINE
  4. METEOSPASMYL (ALVERINE CITRATE (+) SIMETHICONE) [Concomitant]
  5. LANTUS [Concomitant]
     Active Substance: INSULIN GLARGINE
  6. ZOVIRAX [Concomitant]
     Active Substance: ACYCLOVIR
     Dosage: UNK
     Dates: start: 20160319, end: 20160323
  7. LOVENOX [Concomitant]
     Active Substance: ENOXAPARIN SODIUM
  8. CUBICIN [Suspect]
     Active Substance: DAPTOMYCIN
     Indication: STAPHYLOCOCCUS TEST POSITIVE
     Dosage: 500 MG, QD
     Route: 042
     Dates: start: 20160321, end: 20160501
  9. AMLODIPINE [Concomitant]
     Active Substance: AMLODIPINE BESYLATE
  10. OFLOXACIN. [Suspect]
     Active Substance: OFLOXACIN
     Indication: STAPHYLOCOCCUS TEST POSITIVE
     Dosage: 200 MG, TID
     Route: 048
     Dates: start: 20160418, end: 20160515
  11. RIFADIN [Suspect]
     Active Substance: RIFAMPIN
     Indication: BRAIN ABSCESS
     Dosage: 10 MG/KG, Q12H
     Route: 042
     Dates: start: 20160418, end: 20160422
  12. FLUOXETINE HYDROCHLORIDE. [Concomitant]
     Active Substance: FLUOXETINE HYDROCHLORIDE
  13. ECONAZOLE [Concomitant]
     Active Substance: ECONAZOLE
  14. FOSFOCIN [Concomitant]
     Dosage: 2 G, Q6H
     Dates: start: 20160422, end: 20160423
  15. PIVALONE [Concomitant]
     Active Substance: TIXOCORTOL PIVALATE
  16. DAFALGAN [Concomitant]
     Active Substance: ACETAMINOPHEN
  17. MICARDIS [Concomitant]
     Active Substance: TELMISARTAN
  18. CEFOTAXIME SODIUM [Suspect]
     Active Substance: CEFOTAXIME SODIUM
     Indication: STAPHYLOCOCCUS TEST POSITIVE
     Dosage: 2 G, Q4H
     Route: 042
     Dates: start: 20160321, end: 20160418
  19. ARESTAL [Concomitant]
     Active Substance: LOPERAMIDE OXIDE
  20. FUCIDINE (FUSIDIC ACID) [Concomitant]
  21. CETIRIZINE HYDROCHLORIDE. [Concomitant]
     Active Substance: CETIRIZINE HYDROCHLORIDE
  22. LAMALINE [Concomitant]
     Active Substance: ACETAMINOPHEN\CAFFEINE\OPIUM
  23. NOVORAPID [Concomitant]
     Active Substance: INSULIN ASPART
  24. OMEPRAZOLE. [Concomitant]
     Active Substance: OMEPRAZOLE
  25. DALACIN [Concomitant]
     Active Substance: CLINDAMYCIN\CLINDAMYCIN PHOSPHATE
     Dosage: UNK
     Dates: start: 20160423, end: 20160515

REACTIONS (4)
  - Pruritus [Not Recovered/Not Resolved]
  - Rash [Not Recovered/Not Resolved]
  - Lung disorder [Recovering/Resolving]
  - Eosinophil count increased [Not Recovered/Not Resolved]

NARRATIVE: CASE EVENT DATE: 20160501
